FAERS Safety Report 15749604 (Version 2)
Quarter: 2019Q1

REPORT INFORMATION
  Report Type: Spontaneous
  Country: BR (occurrence: BR)
  Receive Date: 20181221
  Receipt Date: 20190104
  Transmission Date: 20190417
  Serious: Yes (Other)
  Sender: FDA-Public Use
  Company Number: BR-009507513-1812BRA008511

PATIENT
  Sex: Female
  Weight: 64 kg

DRUGS (2)
  1. DIOVAN [Concomitant]
     Active Substance: VALSARTAN
     Indication: HYPERTENSION
     Dosage: 1 TABLET A DAY
     Route: 048
     Dates: start: 2010
  2. JANUMET [Suspect]
     Active Substance: METFORMIN HYDROCHLORIDE\SITAGLIPTIN PHOSPHATE
     Indication: TYPE 2 DIABETES MELLITUS
     Dosage: DOSE 50MG/850MG, 1 TABLET BEFORE LUNCH AND 1 TABLET BEFORE DINNER
     Route: 048
     Dates: start: 2014

REACTIONS (4)
  - Adverse event [Recovered/Resolved]
  - Blood glucose fluctuation [Recovered/Resolved]
  - Diabetes mellitus inadequate control [Recovered/Resolved]
  - Hypoglycaemia [Recovered/Resolved]
